FAERS Safety Report 24062057 (Version 1)
Quarter: 2024Q3

REPORT INFORMATION
  Report Type: Spontaneous
  Country: US (occurrence: None)
  Receive Date: 20240707
  Receipt Date: 20240707
  Transmission Date: 20241016
  Serious: Yes (Disabling)
  Sender: Public
  Company Number: None

PATIENT
  Age: 25 Year
  Sex: Female
  Weight: 78.75 kg

DRUGS (3)
  1. HERBALS\MUSHROOMS UNSPECIFIED [Suspect]
     Active Substance: HERBALS\MUSHROOMS UNSPECIFIED
     Indication: Anxiety
     Dates: start: 20240614, end: 20240623
  2. TESTOSTERONE [Concomitant]
     Active Substance: TESTOSTERONE
  3. Cyponiate [Concomitant]

REACTIONS (9)
  - Nausea [None]
  - Vomiting [None]
  - Insomnia [None]
  - Irritability [None]
  - Decreased appetite [None]
  - Abdominal distension [None]
  - Abdominal pain upper [None]
  - Dizziness [None]
  - Disorientation [None]

NARRATIVE: CASE EVENT DATE: 20240622
